FAERS Safety Report 24918088 (Version 2)
Quarter: 2025Q1

REPORT INFORMATION
  Report Type: Spontaneous
  Country: US (occurrence: US)
  Receive Date: 20250203
  Receipt Date: 20250304
  Transmission Date: 20250409
  Serious: No
  Sender: INCYTE
  Company Number: US-EVENT-001280

PATIENT
  Age: 52 Year

DRUGS (1)
  1. OPZELURA [Suspect]
     Active Substance: RUXOLITINIB PHOSPHATE
     Indication: Dermatitis atopic
     Dosage: BID
     Route: 065

REACTIONS (3)
  - Cardiac disorder [Unknown]
  - Chest pain [Unknown]
  - Influenza [Unknown]
